FAERS Safety Report 8939413 (Version 3)
Quarter: 2012Q4

REPORT INFORMATION
  Report Type: 
  Country: AR (occurrence: AR)
  Receive Date: 20121203
  Receipt Date: 20121224
  Transmission Date: 20130627
  Serious: Yes (Other)
  Sender: FDA-Public Use
  Company Number: AR-JNJFOC-20121008915

PATIENT
  Age: 46 Year
  Sex: Female

DRUGS (8)
  1. REMICADE [Suspect]
     Indication: PSORIASIS
     Route: 042
  2. REMICADE [Suspect]
     Indication: PSORIASIS
     Route: 042
     Dates: start: 20121005
  3. REMICADE [Suspect]
     Indication: PSORIASIS
     Route: 042
     Dates: start: 201110
  4. REMICADE [Suspect]
     Indication: PSORIATIC ARTHROPATHY
     Route: 042
     Dates: start: 201110
  5. REMICADE [Suspect]
     Indication: PSORIATIC ARTHROPATHY
     Route: 042
  6. REMICADE [Suspect]
     Indication: PSORIATIC ARTHROPATHY
     Route: 042
     Dates: start: 20121005
  7. ISONIAZID [Suspect]
     Indication: PROPHYLAXIS
     Route: 065
  8. ISONIAZID [Suspect]
     Indication: PROPHYLAXIS
     Route: 065
     Dates: start: 201210, end: 201211

REACTIONS (11)
  - Infection [Recovering/Resolving]
  - Psoriasis [Unknown]
  - Tuberculosis [Recovered/Resolved]
  - Bronchospasm [Recovering/Resolving]
  - Lymphoedema [Recovering/Resolving]
  - Sinusitis [Unknown]
  - Swelling [Recovering/Resolving]
  - Joint swelling [Recovered/Resolved]
  - Infusion related reaction [Recovered/Resolved]
  - Agitation [Not Recovered/Not Resolved]
  - Musculoskeletal stiffness [Recovering/Resolving]
